FAERS Safety Report 24708773 (Version 1)
Quarter: 2024Q4

REPORT INFORMATION
  Report Type: Spontaneous
  Country: BR (occurrence: BR)
  Receive Date: 20241207
  Receipt Date: 20241207
  Transmission Date: 20250114
  Serious: Yes (Life-Threatening, Other)
  Sender: ALEXION PHARMACEUTICALS
  Company Number: BR-AstraZeneca-CH-00761211A

PATIENT

DRUGS (8)
  1. DAPAGLIFLOZIN [Suspect]
     Active Substance: DAPAGLIFLOZIN
     Dosage: 10 MILLIGRAM
     Route: 065
  2. DAPAGLIFLOZIN [Suspect]
     Active Substance: DAPAGLIFLOZIN
     Dosage: 10 MILLIGRAM
     Route: 065
  3. DAPAGLIFLOZIN [Suspect]
     Active Substance: DAPAGLIFLOZIN
     Dosage: 10 MILLIGRAM
     Route: 065
  4. DAPAGLIFLOZIN [Suspect]
     Active Substance: DAPAGLIFLOZIN
     Dosage: 10 MILLIGRAM
     Route: 065
  5. DIAMICRON [Concomitant]
     Dosage: UNK
     Route: 065
  6. DIAMICRON [Concomitant]
     Dosage: UNK
     Route: 065
  7. DIAMICRON [Concomitant]
     Dosage: UNK
     Route: 065
  8. DIAMICRON [Concomitant]
     Dosage: UNK
     Route: 065

REACTIONS (5)
  - Blood pressure decreased [Unknown]
  - Uterine cancer [Unknown]
  - Diabetes mellitus [Not Recovered/Not Resolved]
  - Limb mass [Not Recovered/Not Resolved]
  - Drug ineffective [Not Recovered/Not Resolved]
